FAERS Safety Report 17055086 (Version 1)
Quarter: 2019Q4

REPORT INFORMATION
  Report Type: Spontaneous
  Country: JP (occurrence: JP)
  Receive Date: 20191120
  Receipt Date: 20191120
  Transmission Date: 20200122
  Serious: Yes (Other)
  Sender: FDA-Public Use
  Company Number: JP-INCYTE CORPORATION-2019IN011638

PATIENT

DRUGS (3)
  1. JAKAVI [Suspect]
     Active Substance: RUXOLITINIB
     Dosage: UNK
     Route: 048
  2. JAKAVI [Suspect]
     Active Substance: RUXOLITINIB
     Dosage: UNK
     Route: 048
  3. JAKAVI [Suspect]
     Active Substance: RUXOLITINIB
     Indication: MYELOFIBROSIS
     Dosage: UNK
     Route: 048

REACTIONS (8)
  - Herpes zoster [Unknown]
  - Tenosynovitis [Unknown]
  - Bacteraemia [Unknown]
  - Aeromonas infection [Unknown]
  - Pneumonia [Unknown]
  - Respiratory tract infection [Unknown]
  - Platelet count decreased [Unknown]
  - Arthritis bacterial [Unknown]
